FAERS Safety Report 9462547 (Version 1)
Quarter: 2013Q3

REPORT INFORMATION
  Report Type: Spontaneous
  Country: FR (occurrence: FR)
  Receive Date: 20130816
  Receipt Date: 20130816
  Transmission Date: 20140515
  Serious: Yes (Hospitalization)
  Sender: FDA-Public Use
  Company Number: FR-ASTRAZENECA-2013SE62482

PATIENT
  Age: 36 Year
  Sex: Female

DRUGS (9)
  1. XEROQUEL [Suspect]
     Indication: BIPOLAR DISORDER
     Route: 048
     Dates: start: 20130611
  2. XEROQUEL [Suspect]
     Indication: BIPOLAR DISORDER
     Dosage: DOSE PROGRESSIVELY INCREASED TO 600 MG PER DAY
     Route: 048
     Dates: start: 20130619
  3. XEROQUEL [Suspect]
     Indication: BIPOLAR DISORDER
     Route: 048
  4. NOZINAN [Concomitant]
  5. FUNGIZONE [Concomitant]
  6. LANSOYL [Concomitant]
  7. EUPANTOL [Concomitant]
  8. SULFARLEM [Concomitant]
  9. TERALITHE [Concomitant]

REACTIONS (1)
  - Urinary incontinence [Recovering/Resolving]
